FAERS Safety Report 4720306-6 (Version None)
Quarter: 2005Q3

REPORT INFORMATION
  Report Type: 
  Country: None (occurrence: None)
  Receive Date: 20050719
  Receipt Date: 20050628
  Transmission Date: 20060218
  Serious: Yes (Death)
  Sender: FDA-Public Use
  Company Number: B0386868A

PATIENT
  Age: 38 Year
  Sex: Male

DRUGS (1)
  1. EPIVIR [Suspect]
     Indication: ANTIVIRAL PROPHYLAXIS
     Dates: end: 20030901

REACTIONS (7)
  - BLOOD IMMUNOGLOBULIN A DECREASED [None]
  - BLOOD IMMUNOGLOBULIN G DECREASED [None]
  - GRAFT VERSUS HOST DISEASE [None]
  - HEPATITIS B [None]
  - HEPATITIS FULMINANT [None]
  - SKIN DISORDER [None]
  - STEM CELL TRANSPLANT [None]
